FAERS Safety Report 5231710-4 (Version None)
Quarter: 2007Q1

REPORT INFORMATION
  Report Type: 
  Country: None (occurrence: None)
  Receive Date: 20061201
  Receipt Date: 20060926
  Transmission Date: 20070707
  Serious: No
  Sender: FDA-Public Use
  Company Number: 2006PV021986

PATIENT
  Age: 58 Year
  Sex: Male

DRUGS (1)
  1. BYETTA [Suspect]
     Indication: DIABETES MELLITUS
     Dosage: SC
     Route: 058
     Dates: start: 20060401

REACTIONS (2)
  - VOMITING [None]
  - WEIGHT DECREASED [None]
